FAERS Safety Report 4558600-4 (Version None)
Quarter: 2005Q1

REPORT INFORMATION
  Report Type: 
  Country: None (occurrence: None)
  Receive Date: 20050121
  Receipt Date: 20050113
  Transmission Date: 20050727
  Serious: Yes (Other)
  Sender: FDA-Public Use
  Company Number: FR-ROCHE-392359

PATIENT
  Age: 18 Year
  Sex: Male

DRUGS (1)
  1. ROACCUTANE [Suspect]
     Indication: ACNE
     Dosage: TOTAL DOSE STATED AS 145 M/KG.
     Route: 048
     Dates: end: 20040415

REACTIONS (2)
  - ENTEROCOLITIS HAEMORRHAGIC [None]
  - PROCTITIS [None]
